FAERS Safety Report 21839277 (Version 1)
Quarter: 2023Q1

REPORT INFORMATION
  Report Type: Report from Study
  Country: AT (occurrence: AT)
  Receive Date: 20230109
  Receipt Date: 20230109
  Transmission Date: 20230418
  Serious: Yes (Hospitalization, Other)
  Sender: FDA-Public Use
  Company Number: AT-EMA-DD-20181107-kumarvn_p-110545

PATIENT
  Age: 65 Year
  Sex: Male
  Weight: 56 kg

DRUGS (36)
  1. GEMCITABINE [Suspect]
     Active Substance: GEMCITABINE
     Indication: Pancreatic carcinoma
     Dosage: 1295 MILLIGRAM/SQ. METER
     Route: 065
     Dates: start: 201611
  2. GEMCITABINE [Suspect]
     Active Substance: GEMCITABINE
     Dosage: 1289 MILLIGRAM/SQ. METER
     Route: 065
     Dates: start: 20161117
  3. GEMCITABINE [Suspect]
     Active Substance: GEMCITABINE
     Dosage: 1635 MILLIGRAM/SQ. METER
     Route: 065
     Dates: start: 201610
  4. GEMCITABINE [Suspect]
     Active Substance: GEMCITABINE
     Dosage: 3888 MILLIGRAM/SQ. METER
     Route: 065
     Dates: start: 201611
  5. GEMCITABINE [Suspect]
     Active Substance: GEMCITABINE
     Dosage: 4913 MILLIGRAM/SQ. METER
     Route: 065
     Dates: start: 20161012
  6. GEMCITABINE [Suspect]
     Active Substance: GEMCITABINE
     Dosage: 1636 MILLIGRAM/SQ. METER
     Route: 065
     Dates: start: 201610
  7. GEMCITABINE [Suspect]
     Active Substance: GEMCITABINE
     Dosage: 1304.29 MILLIGRAM
     Route: 065
     Dates: start: 20161215
  8. GEMCITABINE [Suspect]
     Active Substance: GEMCITABINE
     Dosage: 1218 MILLIGRAM/SQ. METER
     Route: 065
     Dates: start: 20170112
  9. GEMCITABINE [Suspect]
     Active Substance: GEMCITABINE
     Dosage: 1691 MILLIGRAM/SQ. METER
     Route: 065
     Dates: start: 201609
  10. GEMCITABINE [Suspect]
     Active Substance: GEMCITABINE
     Dosage: 1642 MILLIGRAM/SQ. METER
     Route: 065
     Dates: start: 201610
  11. GEMCITABINE [Suspect]
     Active Substance: GEMCITABINE
     Dosage: 963 MILLIGRAM/SQ. METER
     Route: 065
     Dates: start: 201611
  12. GEMCITABINE [Suspect]
     Active Substance: GEMCITABINE
     Dosage: 842 MILLIGRAM/SQ. METER
     Route: 065
     Dates: start: 201609
  13. GEMCITABINE [Suspect]
     Active Substance: GEMCITABINE
     Dosage: 1209 MILLIGRAM/SQ. METER
     Route: 065
     Dates: start: 201701
  14. GEMCITABINE [Suspect]
     Active Substance: GEMCITABINE
     Dosage: 4306 MILLIGRAM/SQ. METER
     Route: 065
     Dates: start: 201609
  15. GEMCITABINE [Suspect]
     Active Substance: GEMCITABINE
     Dosage: 3390 MILLIGRAM/SQ. METER
     Route: 065
     Dates: start: 201701
  16. GEMCITABINE [Suspect]
     Active Substance: GEMCITABINE
     Dosage: 6221 MILLIGRAM/SQ. METER
     Route: 065
     Dates: start: 201611
  17. GEMCITABINE [Suspect]
     Active Substance: GEMCITABINE
     Dosage: 2533 MILLIGRAM/SQ. METER
     Route: 065
     Dates: start: 20160921
  18. GEMCITABINE [Suspect]
     Active Substance: GEMCITABINE
     Dosage: 5424 MILLIGRAM/SQ. METER
     Route: 065
     Dates: start: 201701, end: 20170210
  19. GEMCITABINE [Suspect]
     Active Substance: GEMCITABINE
     Dosage: 7861 MILLIGRAM/SQ. METER
     Route: 065
     Dates: start: 201610
  20. ABRAXANE [Suspect]
     Active Substance: PACLITAXEL
     Indication: Pancreatic carcinoma
     Dosage: 315 MILLIGRAM/SQ. METER
     Route: 065
     Dates: start: 20160921
  21. ABRAXANE [Suspect]
     Active Substance: PACLITAXEL
     Dosage: 842 MILLIGRAM/SQ. METER
     Route: 065
     Dates: start: 201610
  22. ABRAXANE [Suspect]
     Active Substance: PACLITAXEL
     Dosage: 485 MILLIGRAM/SQ. METER
     Route: 065
     Dates: start: 201611
  23. ABRAXANE [Suspect]
     Active Substance: PACLITAXEL
     Dosage: 104 MILLIGRAM/SQ. METER
     Route: 065
     Dates: start: 201609
  24. ABRAXANE [Suspect]
     Active Substance: PACLITAXEL
     Dosage: 1901 MILLIGRAM/SQ. METER
     Route: 065
     Dates: start: 201701, end: 20170210
  25. ABRAXANE [Suspect]
     Active Substance: PACLITAXEL
     Dosage: 526 MILLIGRAM/SQ. METER
     Route: 065
     Dates: start: 20161012
  26. ABRAXANE [Suspect]
     Active Substance: PACLITAXEL
     Dosage: 161 MILLIGRAM/SQ. METER
     Route: 065
     Dates: start: 201611
  27. ABRAXANE [Suspect]
     Active Substance: PACLITAXEL
     Dosage: 163 MILLIGRAM/SQ. METER
     Route: 065
     Dates: start: 201610
  28. ABRAXANE [Suspect]
     Active Substance: PACLITAXEL
     Dosage: 200 MILLIGRAM/SQ. METER
     Route: 065
     Dates: start: 201610
  29. ABRAXANE [Suspect]
     Active Substance: PACLITAXEL
     Dosage: 119 MILLIGRAM/SQ. METER
     Route: 065
     Dates: start: 20170112
  30. ABRAXANE [Suspect]
     Active Substance: PACLITAXEL
     Dosage: 211 MILLIGRAM/SQ. METER
     Route: 065
     Dates: start: 201609
  31. ABRAXANE [Suspect]
     Active Substance: PACLITAXEL
     Dosage: 162 MILLIGRAM/SQ. METER, Q28D
     Route: 065
     Dates: start: 20161117
  32. ABRAXANE [Suspect]
     Active Substance: PACLITAXEL
     Dosage: 162 MILLIGRAM/SQ. METER, Q28D
     Route: 065
     Dates: start: 20161215
  33. ABRAXANE [Suspect]
     Active Substance: PACLITAXEL
     Dosage: 776 MILLIGRAM/SQ. METER
     Route: 065
     Dates: start: 201611
  34. ABRAXANE [Suspect]
     Active Substance: PACLITAXEL
     Dosage: 536 MILLIGRAM/SQ. METER
     Route: 065
     Dates: start: 20161012
  35. CHOLECALCIFEROL [Concomitant]
     Active Substance: CHOLECALCIFEROL
     Indication: Product used for unknown indication
     Dosage: 4 MILLIGRAM
     Route: 065
  36. NEXIUM [Concomitant]
     Active Substance: ESOMEPRAZOLE MAGNESIUM
     Indication: Product used for unknown indication
     Dosage: 80 MILLIGRAM
     Route: 065

REACTIONS (4)
  - Anastomotic ulcer [Recovered/Resolved]
  - Anaemia [Recovered/Resolved]
  - Leukopenia [Unknown]
  - Neutropenia [Recovered/Resolved]

NARRATIVE: CASE EVENT DATE: 20160928
